FAERS Safety Report 6905871-2 (Version None)
Quarter: 2010Q3

REPORT INFORMATION
  Report Type: 
  Country: None (occurrence: None)
  Receive Date: 20100804
  Receipt Date: 20100722
  Transmission Date: 20110219
  Serious: Yes (Hospitalization, Other)
  Sender: FDA-Public Use
  Company Number: JP-ELI_LILLY_AND_COMPANY-JP201006006302

PATIENT
  Age: 75 Year
  Sex: Male
  Weight: 52.6 kg

DRUGS (11)
  1. CYMBALTA [Suspect]
     Indication: DEPRESSION
     Dosage: 20 MG, DAILY (1/D)
     Route: 048
     Dates: start: 20100517, end: 20100528
  2. UBRETID [Concomitant]
     Indication: URINARY RETENTION
     Dosage: 5 MG, DAILY (1/D)
     Route: 048
     Dates: start: 20100521, end: 20100528
  3. LENDORMIN [Concomitant]
     Indication: INSOMNIA
     Dosage: 0.25 MG, DAILY (1/D)
     Route: 048
     Dates: start: 20100513, end: 20100527
  4. SENNOSIDE [Concomitant]
     Indication: CONSTIPATION
     Dosage: 12 MG, DAILY (1/D)
     Route: 048
     Dates: start: 20100517, end: 20100527
  5. OLMESARTAN MEDOXOMIL [Concomitant]
     Indication: HYPERTENSION
     Dosage: 40 MG, DAILY (1/D)
     Route: 048
     Dates: start: 20100513
  6. ARTIST [Concomitant]
     Indication: HYPERTENSION
     Dosage: 10 MG, DAILY (1/D)
     Route: 048
     Dates: start: 20100513
  7. METHYCOBAL [Concomitant]
     Dosage: 1500 UG, DAILY (1/D)
     Route: 048
     Dates: start: 20100513
  8. MEVALOTIN [Concomitant]
     Indication: HYPERLIPIDAEMIA
     Dosage: 5 MG, DAILY (1/D)
     Route: 048
     Dates: start: 20100513
  9. GLUFAST [Concomitant]
     Indication: DIABETES MELLITUS
     Dosage: 10 MG, DAILY (1/D)
     Route: 048
     Dates: start: 20100513
  10. SEIBULE [Concomitant]
     Indication: DIABETES MELLITUS
     Dosage: 50 MG, DAILY (1/D)
     Route: 048
     Dates: start: 20100513
  11. NOVO RAPID [Concomitant]
     Indication: DIABETES MELLITUS

REACTIONS (2)
  - BLOOD POTASSIUM DECREASED [None]
  - INAPPROPRIATE ANTIDIURETIC HORMONE SECRETION [None]
